FAERS Safety Report 7129137-3 (Version None)
Quarter: 2010Q4

REPORT INFORMATION
  Report Type: 
  Country: None (occurrence: None)
  Receive Date: 20101130
  Receipt Date: 20101123
  Transmission Date: 20110411
  Serious: Yes (Other)
  Sender: FDA-Public Use
  Company Number: CHNY2010GB00447

PATIENT

DRUGS (2)
  1. PARACETAMOL (NCH) [Suspect]
     Dosage: 5 GRAMS
  2. IBUPROFEN [Suspect]
     Dosage: 12 GRAMS

REACTIONS (3)
  - BLOOD CREATININE INCREASED [None]
  - MULTIPLE DRUG OVERDOSE [None]
  - RENAL FAILURE ACUTE [None]
